FAERS Safety Report 24527085 (Version 1)
Quarter: 2024Q4

REPORT INFORMATION
  Report Type: Report from Study
  Country: US (occurrence: US)
  Receive Date: 20241021
  Receipt Date: 20241021
  Transmission Date: 20250115
  Serious: No
  Sender: ROCHE
  Company Number: US-ROCHE-3560805

PATIENT
  Age: 47 Year
  Sex: Male

DRUGS (1)
  1. COTELLIC [Suspect]
     Active Substance: COBIMETINIB
     Indication: Sarcoma
     Dosage: TAKE 2 TABS BY MOUTH 3 WEEKS ON AND OFF ONE WEEK
     Route: 048

REACTIONS (2)
  - No adverse event [Unknown]
  - Off label use [Unknown]
